FAERS Safety Report 7723836-8 (Version None)
Quarter: 2011Q3

REPORT INFORMATION
  Report Type: 
  Country: None (occurrence: None)
  Receive Date: 20110826
  Receipt Date: 20110812
  Transmission Date: 20111222
  Serious: Yes (Other)
  Sender: FDA-Public Use
  Company Number: 20110332

PATIENT
  Age: 47 Year
  Sex: Female
  Weight: 90.7194 kg

DRUGS (11)
  1. MULTI-VITAMIN [Concomitant]
  2. VITAMIN D [Concomitant]
  3. FLEXERIL [Concomitant]
  4. CELEXA [Concomitant]
  5. SKELAXIN [Concomitant]
  6. DEXAMETHASONE SODIUM PHOSPHATE [Suspect]
     Indication: MUSCULOSKELETAL PAIN
     Dosage: IONTOPHORESIS
     Dates: start: 20110307, end: 20110323
  7. TRAMADOL HYDROCHLORIDE [Concomitant]
  8. LISINOPRIL AND HYDROCHLOROTHIAZIDE [Concomitant]
  9. LOVAZA [Concomitant]
  10. NEURONTIN [Concomitant]
  11. NAPROSYN [Concomitant]

REACTIONS (6)
  - SWELLING [None]
  - EXOSTOSIS [None]
  - ECCHYMOSIS [None]
  - OFF LABEL USE [None]
  - LYMPHADENOPATHY [None]
  - MUSCULAR WEAKNESS [None]
